FAERS Safety Report 11765767 (Version 2)
Quarter: 2016Q1

REPORT INFORMATION
  Report Type: Spontaneous
  Country: US (occurrence: US)
  Receive Date: 20151121
  Receipt Date: 20160303
  Transmission Date: 20160525
  Serious: No
  Sender: FDA-Public Use
  Company Number: US-CELGENEUS-USA-2015100651

PATIENT

DRUGS (4)
  1. CURCUMIN [Concomitant]
     Active Substance: CURCUMIN
     Indication: PSORIASIS
     Dosage: 1000 MILLIGRAM
     Route: 065
     Dates: start: 201507
  2. PROTOPIC [Concomitant]
     Active Substance: TACROLIMUS
     Indication: PSORIASIS
     Route: 065
     Dates: start: 201201
  3. OTEZLA [Suspect]
     Active Substance: APREMILAST
     Dosage: .34 MILLIGRAM
     Route: 048
     Dates: start: 20150715
  4. OTEZLA [Suspect]
     Active Substance: APREMILAST
     Indication: PSORIASIS
     Route: 048
     Dates: start: 20150715

REACTIONS (1)
  - Insomnia [Recovered/Resolved]

NARRATIVE: CASE EVENT DATE: 201510
